FAERS Safety Report 16336475 (Version 1)
Quarter: 2019Q2

REPORT INFORMATION
  Report Type: Spontaneous
  Country: US (occurrence: US)
  Receive Date: 20190521
  Receipt Date: 20190521
  Transmission Date: 20190711
  Serious: Yes (Hospitalization)
  Sender: FDA-Public Use
  Company Number: US-AUROBINDO-AUR-APL-2019-028513

PATIENT

DRUGS (24)
  1. KETAMINE [Suspect]
     Active Substance: KETAMINE
     Indication: PROCEDURAL PAIN
     Dosage: 30 MILLIGRAM, ON HD 07, AS 10 MG BOLUS (0.1 TO 0.15 MG/KG)
     Route: 040
  2. KETAMINE [Suspect]
     Active Substance: KETAMINE
     Dosage: 30 MILLIGRAM, ON HD 8
     Route: 040
  3. KETAMINE [Suspect]
     Active Substance: KETAMINE
     Dosage: 520 MILLIGRAM, ON HD 10 AS 0.1 MG/KG/HOUR
     Route: 041
  4. MIDAZOLAM [Concomitant]
     Active Substance: MIDAZOLAM HYDROCHLORIDE
     Dosage: 2 MILLIGRAM, ON HD 16
     Route: 065
  5. MORPHINE [Concomitant]
     Active Substance: MORPHINE
     Dosage: 30 MILLIGRAM, ON HD 9
     Route: 048
  6. MORPHINE [Concomitant]
     Active Substance: MORPHINE
     Dosage: 13236 MILLIEQUIVALENT, ON HD 11
  7. MORPHINE [Concomitant]
     Active Substance: MORPHINE
     Dosage: 4096 MILLIEQUIVALENT, ON HD 14
     Route: 048
  8. HYDROMORPHONE [Concomitant]
     Active Substance: HYDROMORPHONE
     Indication: PROCEDURAL PAIN
     Dosage: UNK, ON HD 7
     Route: 065
  9. KETAMINE [Suspect]
     Active Substance: KETAMINE
     Dosage: 20 MILLIGRAM, ON HD 16, AS 0.2 MG/KG
     Route: 041
  10. MORPHINE [Concomitant]
     Active Substance: MORPHINE
     Dosage: 28993 MILLIEQUIVALENT, ON HD 13
     Route: 048
  11. DULOXETINE. [Suspect]
     Active Substance: DULOXETINE
     Dosage: 60 MILLIGRAM, (ON DAY 8 OF HOSPITALISATION)
     Route: 065
  12. MORPHINE [Concomitant]
     Active Substance: MORPHINE
     Dosage: 4929 MILLIEQUIVALENT, ON HD 12
     Route: 048
  13. MORPHINE [Concomitant]
     Active Substance: MORPHINE
     Dosage: 197 MILLIEQUIVALENT, ON HD 15
     Route: 048
  14. MIDAZOLAM [Concomitant]
     Active Substance: MIDAZOLAM HYDROCHLORIDE
     Dosage: 1 MILLIGRAM, ON HD 23
     Route: 065
  15. DULOXETINE. [Suspect]
     Active Substance: DULOXETINE
     Indication: SEASONAL AFFECTIVE DISORDER
     Dosage: 60 MILLIGRAM, (ON DAY 7 OF HOSPITALISATION)
     Route: 065
  16. PROPOFOL. [Concomitant]
     Active Substance: PROPOFOL
     Indication: PROCEDURAL PAIN
     Dosage: 170 MILLIGRAM, ON HD 9
     Route: 065
  17. MIDAZOLAM [Concomitant]
     Active Substance: MIDAZOLAM HYDROCHLORIDE
     Indication: PROCEDURAL PAIN
     Dosage: 2 MILLIGRAM, ON HD 11
     Route: 065
  18. FENTANYL. [Concomitant]
     Active Substance: FENTANYL
     Indication: PROCEDURAL PAIN
     Dosage: 225 MILLIGRAM
  19. KETAMINE [Suspect]
     Active Substance: KETAMINE
     Dosage: 30 MILLIGRAM, ON HD 9
     Route: 041
  20. PROPOFOL. [Concomitant]
     Active Substance: PROPOFOL
     Dosage: 40 MILLIGRAM, ON HD 13
     Route: 065
  21. PROPOFOL. [Concomitant]
     Active Substance: PROPOFOL
     Dosage: 60 MILLIGRAM, ON HD 18
     Route: 065
  22. PROPOFOL. [Concomitant]
     Active Substance: PROPOFOL
     Dosage: 160 MILLIGRAM, ON HD 20
     Route: 065
  23. MORPHINE [Concomitant]
     Active Substance: MORPHINE
     Indication: PROCEDURAL PAIN
     Dosage: 3 MILLIGRAM, ON HD 7
     Route: 048
  24. MORPHINE [Concomitant]
     Active Substance: MORPHINE
     Dosage: 22500 MILLIEQUIVALENT, ON HD 10
     Route: 048

REACTIONS (7)
  - Pressure of speech [Recovered/Resolved]
  - Mania [Recovered/Resolved]
  - Sleep disorder [Recovered/Resolved]
  - Euphoric mood [Recovered/Resolved]
  - Flight of ideas [Recovered/Resolved]
  - Distractibility [Recovered/Resolved]
  - Energy increased [Recovered/Resolved]
